FAERS Safety Report 4600113-5 (Version None)
Quarter: 2005Q1

REPORT INFORMATION
  Report Type: 
  Country: None (occurrence: None)
  Receive Date: 20050303
  Receipt Date: 20050224
  Transmission Date: 20050727
  Serious: Yes (Other)
  Sender: FDA-Public Use
  Company Number: 2005-02-1714

PATIENT
  Age: 62 Year
  Sex: Female

DRUGS (2)
  1. NASONEX [Suspect]
     Indication: CHRONIC SINUSITIS
     Dosage: 1 SPRA/NARE QD NASAL SPRA
     Route: 045
  2. NASONEX [Suspect]
     Indication: POLYP
     Dosage: 1 SPRA/NARE QD NASAL SPRA
     Route: 045

REACTIONS (1)
  - ANOSMIA [None]
